FAERS Safety Report 5117401-9 (Version None)
Quarter: 2006Q3

REPORT INFORMATION
  Report Type: 
  Country: None (occurrence: None)
  Receive Date: 20060926
  Receipt Date: 20060913
  Transmission Date: 20061208
  Serious: Yes (Other)
  Sender: FDA-Public Use
  Company Number: 2006BI010390

PATIENT
  Sex: Female

DRUGS (5)
  1. ZEVALIN [Suspect]
     Indication: DRUG USE FOR UNKNOWN INDICATION
     Dosage: 1X; IV
     Route: 042
     Dates: start: 20060711, end: 20060711
  2. ZEVALIN [Suspect]
     Indication: DRUG USE FOR UNKNOWN INDICATION
     Dosage: 1X; IV
     Route: 042
     Dates: start: 20060718, end: 20060718
  3. RITUXIMAB [Concomitant]
  4. NOVANTRONE [Concomitant]
  5. FLUDARA [Concomitant]

REACTIONS (10)
  - DIZZINESS [None]
  - DYSGEUSIA [None]
  - LYMPHADENOPATHY [None]
  - LYMPHOMA [None]
  - NAUSEA [None]
  - PAIN [None]
  - PALPITATIONS [None]
  - TACHYCARDIA [None]
  - URETERIC OBSTRUCTION [None]
  - URINARY TRACT INFECTION [None]
